FAERS Safety Report 24425891 (Version 1)
Quarter: 2024Q4

REPORT INFORMATION
  Report Type: Spontaneous
  Country: DK (occurrence: DK)
  Receive Date: 20241011
  Receipt Date: 20241011
  Transmission Date: 20250115
  Serious: Yes (Hospitalization)
  Sender: ENDO
  Company Number: DK-ENDO USA, INC.-2024-003593

PATIENT
  Age: 49 Year
  Sex: Female

DRUGS (2)
  1. BACLOFEN [Suspect]
     Active Substance: BACLOFEN
     Indication: Product used for unknown indication
     Dosage: 300 MILLIGRAM, UNKNOWN (APPROX. 30 TABLETS X 10 MG PRIOR TO ADMISSION)
     Route: 048
  2. BACLOFEN [Suspect]
     Active Substance: BACLOFEN
     Dosage: UNK UNKNOWN, DAILY
     Route: 048

REACTIONS (2)
  - Toxic encephalopathy [Recovered/Resolved]
  - Intentional overdose [Recovered/Resolved]
